FAERS Safety Report 4693324-4 (Version None)
Quarter: 2005Q2

REPORT INFORMATION
  Report Type: 
  Country: None (occurrence: None)
  Receive Date: 20050617
  Receipt Date: 20050425
  Transmission Date: 20051028
  Serious: Yes (Hospitalization)
  Sender: FDA-Public Use
  Company Number: ESWYE621126APR05

PATIENT
  Sex: Female
  Weight: 70 kg

DRUGS (12)
  1. ENBREL [Suspect]
     Indication: RHEUMATOID ARTHRITIS
     Route: 048
  2. METHOTREXATE [Concomitant]
  3. AMILORIDE/HYDROCHLORTHIAZIDE [Concomitant]
  4. POTASSIUM ASCORBATE [Concomitant]
  5. TORSEMIDE [Concomitant]
  6. HIDROSMIN [Concomitant]
  7. AMITRIPTYLINE HYDROCHLORIDE [Concomitant]
  8. MISOPROSTOL [Concomitant]
  9. DIGOXIN [Concomitant]
  10. ISOPHANE INSULIN [Concomitant]
  11. ACENOCOUMAROL [Concomitant]
  12. SALMETEROL XINAFOATE [Concomitant]
     Dates: start: 20050509, end: 20050516

REACTIONS (4)
  - DIABETES MELLITUS INADEQUATE CONTROL [None]
  - LOBAR PNEUMONIA [None]
  - OVERDOSE [None]
  - RESPIRATORY FAILURE [None]
